FAERS Safety Report 8555534-5 (Version None)
Quarter: 2012Q3

REPORT INFORMATION
  Report Type: 
  Country: None (occurrence: None)
  Receive Date: 20120731
  Receipt Date: 20110901
  Transmission Date: 20120928
  Serious: No
  Sender: FDA-Public Use
  Company Number: US-ASTRAZENECA-2010SE60495

PATIENT
  Age: 42 Year
  Sex: Female
  Weight: 116.6 kg

DRUGS (1)
  1. SEROQUEL [Suspect]
     Indication: SCHIZOAFFECTIVE DISORDER
     Route: 048
     Dates: start: 20051221

REACTIONS (4)
  - INSOMNIA [None]
  - BREAST DISCOMFORT [None]
  - TREMOR [None]
  - MALAISE [None]
